FAERS Safety Report 8784797 (Version 1)
Quarter: 2012Q4

REPORT INFORMATION
  Report Type: 
  Country: US (occurrence: US)
  Receive Date: 20120914
  Receipt Date: 20120914
  Transmission Date: 20130627
  Serious: Yes (Other)
  Sender: FDA-Public Use
  Company Number: US-PFIZER INC-2012227315

PATIENT
  Age: 55 Year
  Sex: Female
  Weight: 48 kg

DRUGS (3)
  1. LYRICA [Suspect]
     Indication: FIBROMYALGIA
     Dosage: 50 mg, 3x/day
     Route: 048
     Dates: end: 201209
  2. OXYCODONE [Concomitant]
     Dosage: 30 mg, as needed
  3. FENTANYL [Concomitant]
     Dosage: 100 ug, as needed

REACTIONS (2)
  - Gallbladder disorder [Unknown]
  - Blood potassium decreased [Unknown]
